FAERS Safety Report 12636304 (Version 1)
Quarter: 2016Q3

REPORT INFORMATION
  Report Type: Spontaneous
  Country: US (occurrence: US)
  Receive Date: 20160809
  Receipt Date: 20160809
  Transmission Date: 20161109
  Serious: No
  Sender: FDA-Public Use
  Company Number: US-TEVA-676804ACC

PATIENT
  Age: 21 Year
  Sex: Female
  Weight: 65.83 kg

DRUGS (2)
  1. MIDOL [Concomitant]
     Active Substance: IBUPROFEN
  2. PLAN B ONE-STEP [Suspect]
     Active Substance: LEVONORGESTREL
     Indication: POST COITAL CONTRACEPTION
     Dates: start: 20160614, end: 20160614

REACTIONS (7)
  - Constipation [Not Recovered/Not Resolved]
  - Vaginal haemorrhage [Recovered/Resolved]
  - Dysmenorrhoea [Recovered/Resolved]
  - Dyspepsia [Unknown]
  - Back pain [Unknown]
  - Abdominal distension [Unknown]
  - Menstruation delayed [Not Recovered/Not Resolved]

NARRATIVE: CASE EVENT DATE: 20160619
